FAERS Safety Report 5456410-7 (Version None)
Quarter: 2007Q3

REPORT INFORMATION
  Report Type: 
  Country: None (occurrence: None)
  Receive Date: 20070918
  Receipt Date: 20070910
  Transmission Date: 20080115
  Serious: Yes (Hospitalization)
  Sender: FDA-Public Use
  Company Number: FR-ELI_LILLY_AND_COMPANY-FR200707005871

PATIENT
  Age: 57 Year
  Sex: Female

DRUGS (5)
  1. OGAST [Concomitant]
     Dosage: 15 MG, DAILY (1/D)
     Route: 048
  2. PIASCLEDINE [Concomitant]
  3. FENOFIBRATE [Concomitant]
  4. DIANTALVIC [Concomitant]
  5. FORTEO [Suspect]
     Indication: OSTEOPOROSIS
     Dosage: 20 UG, DAILY (1/D)
     Route: 058
     Dates: start: 20060720

REACTIONS (1)
  - DIVERTICULUM INTESTINAL [None]
